FAERS Safety Report 8352188-8 (Version None)
Quarter: 2012Q2

REPORT INFORMATION
  Report Type: 
  Country: None (occurrence: None)
  Receive Date: 20120511
  Receipt Date: 20120502
  Transmission Date: 20120825
  Serious: Yes (Hospitalization, Other)
  Sender: FDA-Public Use
  Company Number: US-CELGENEUS-163-21880-12042195

PATIENT
  Sex: Male

DRUGS (5)
  1. DURAGESIC-100 [Concomitant]
     Indication: PAIN
     Dosage: 75 MILLIGRAM
     Route: 062
  2. PROVERA [Concomitant]
     Indication: ATRIAL FIBRILLATION
     Dosage: 150 MILLIGRAM
     Route: 048
  3. REVLIMID [Suspect]
     Indication: MULTIPLE MYELOMA
     Dosage: 25 MILLIGRAM
     Route: 048
     Dates: start: 20100701
  4. DECADRON [Concomitant]
     Dosage: 40 MILLIGRAM
     Route: 048
     Dates: start: 20100701
  5. REVLIMID [Suspect]
     Dosage: 15 MILLIGRAM
     Route: 048
     Dates: start: 20120401

REACTIONS (4)
  - ATRIAL FIBRILLATION [None]
  - ADVERSE EVENT [None]
  - DEEP VEIN THROMBOSIS [None]
  - FATIGUE [None]
